FAERS Safety Report 16904996 (Version 1)
Quarter: 2019Q4

REPORT INFORMATION
  Report Type: Spontaneous
  Country: US (occurrence: US)
  Receive Date: 20191010
  Receipt Date: 20191010
  Transmission Date: 20200122
  Serious: No
  Sender: FDA-Public Use
  Company Number: None

PATIENT
  Age: 7 Year
  Sex: Male
  Weight: 22.5 kg

DRUGS (4)
  1. METHYPHENIDATE 10 MG TAB. MFG: MALLI [Suspect]
     Active Substance: METHYLPHENIDATE HYDROCHLORIDE
     Indication: ATTENTION DEFICIT/HYPERACTIVITY DISORDER
     Dosage: ?          QUANTITY:1 TABLET(S);?
     Route: 048
     Dates: start: 20190830, end: 20191010
  2. CALMKIDS MAGNESIUM [Concomitant]
  3. BARCLEANS OMEGA 3-LEMONSWIRL [Concomitant]
  4. MULTIVITAMIN (KIRKLAND SIGNATURE CHILDRENS) [Concomitant]

REACTIONS (3)
  - Product substitution issue [None]
  - Therapeutic product effect decreased [None]
  - Abnormal behaviour [None]

NARRATIVE: CASE EVENT DATE: 20190916
